FAERS Safety Report 5660860-3 (Version None)
Quarter: 2008Q1

REPORT INFORMATION
  Report Type: 
  Country: None (occurrence: None)
  Receive Date: 20080311
  Receipt Date: 20070731
  Transmission Date: 20080703
  Serious: Yes (Disabling)
  Sender: FDA-Public Use
  Company Number: US-BRISTOL-MYERS SQUIBB COMPANY-13742622

PATIENT
  Age: 51 Year
  Sex: Male

DRUGS (8)
  1. CARMUSTINE [Suspect]
     Indication: GLIOBLASTOMA MULTIFORME
     Route: 042
     Dates: end: 20060503
  2. DILANTIN [Concomitant]
  3. KEPPRA [Concomitant]
  4. ZONEGRAN [Concomitant]
  5. DECADRON [Concomitant]
  6. ACTONEL [Concomitant]
  7. PREDNISONE TAB [Concomitant]
  8. LEXAPRO [Concomitant]

REACTIONS (1)
  - PULMONARY FIBROSIS [None]
